FAERS Safety Report 5786870-3 (Version None)
Quarter: 2008Q2

REPORT INFORMATION
  Report Type: 
  Country: None (occurrence: None)
  Receive Date: 20080625
  Receipt Date: 20080618
  Transmission Date: 20081010
  Serious: Yes (Other)
  Sender: FDA-Public Use
  Company Number: US-BAYER-200820812NA

PATIENT
  Age: 25 Year
  Sex: Female
  Weight: 43 kg

DRUGS (1)
  1. MIRENA [Suspect]
     Indication: CONTRACEPTION
     Route: 015
     Dates: start: 20080307, end: 20080501

REACTIONS (3)
  - IUCD COMPLICATION [None]
  - PROCEDURAL PAIN [None]
  - UTERINE RUPTURE [None]
